FAERS Safety Report 7575130-6 (Version None)
Quarter: 2011Q2

REPORT INFORMATION
  Report Type: 
  Country: None (occurrence: None)
  Receive Date: 20110627
  Receipt Date: 20091122
  Transmission Date: 20111010
  Serious: Yes (Death, Other)
  Sender: FDA-Public Use
  Company Number: US-BAYER-2011-006377

PATIENT
  Sex: Female
  Weight: 77 kg

DRUGS (18)
  1. TRASYLOL [Suspect]
     Indication: CORONARY ARTERY BYPASS
     Dosage: OTHER
     Dates: start: 19991224
  2. TRASYLOL [Suspect]
  3. TISSUE PLASMINOGEN ACTIVATOR [Concomitant]
     Dosage: UNK
     Route: 042
     Dates: start: 19991217, end: 19991217
  4. NITROGLYCERIN [Concomitant]
     Dosage: UNK
     Route: 060
     Dates: start: 19991217, end: 19991217
  5. PREVACID [Concomitant]
     Dosage: UNK
     Route: 048
     Dates: start: 19991220
  6. HEPARIN [Concomitant]
     Dosage: UNK
     Route: 042
     Dates: start: 19991220
  7. MOTRIN [Concomitant]
     Dosage: UNK
     Route: 048
  8. GLYBURIDE [Concomitant]
     Dosage: 2.5 MG, BID
     Route: 048
  9. INSULIN [Concomitant]
     Dosage: DRIP AND SLIDING SCALE
     Route: 042
     Dates: start: 19991217
  10. COZAAR [Concomitant]
     Dosage: 100 MG, QD
     Route: 048
  11. VERPAMIL HCL [Concomitant]
     Dosage: UNK
     Route: 022
     Dates: start: 19991217, end: 19991217
  12. RED BLOOD CELLS [Concomitant]
     Dosage: UNK
     Dates: start: 19991224
  13. NITROGLYCERIN [Concomitant]
     Route: 042
  14. DOBUTAMINE HCL [Concomitant]
     Dosage: UNK
     Route: 042
     Dates: start: 19991220
  15. LASIX [Concomitant]
     Dosage: 80MG EVERY 8 HOURS
     Route: 042
     Dates: start: 19991217
  16. PLATELETS [Concomitant]
     Dosage: UNK
     Dates: start: 19991224
  17. DOPAMINE HCL [Concomitant]
     Dosage: UNK
     Route: 042
     Dates: start: 19991220
  18. INSULIN [Concomitant]
     Dosage: DRIP AND SLIDING SCALE
     Route: 058
     Dates: start: 19991217

REACTIONS (12)
  - ANXIETY [None]
  - INJURY [None]
  - DEATH [None]
  - RENAL FAILURE [None]
  - EMOTIONAL DISTRESS [None]
  - FEAR [None]
  - MULTI-ORGAN FAILURE [None]
  - RENAL IMPAIRMENT [None]
  - UNEVALUABLE EVENT [None]
  - STRESS [None]
  - PAIN [None]
  - RENAL INJURY [None]
